FAERS Safety Report 5857277-5 (Version None)
Quarter: 2008Q3

REPORT INFORMATION
  Report Type: 
  Country: None (occurrence: None)
  Receive Date: 20080822
  Receipt Date: 20080818
  Transmission Date: 20090109
  Serious: Yes (Other)
  Sender: FDA-Public Use
  Company Number: 032392

PATIENT
  Age: 31 Year
  Sex: Female

DRUGS (1)
  1. CLARAVIS [Suspect]
     Indication: ACNE
     Dosage: 20 MG;BID;ORAL
     Route: 048
     Dates: start: 20080528, end: 20080814

REACTIONS (2)
  - MOOD SWINGS [None]
  - SUICIDAL IDEATION [None]
